FAERS Safety Report 23769848 (Version 1)
Quarter: 2024Q2

REPORT INFORMATION
  Report Type: Spontaneous
  Country: US (occurrence: None)
  Receive Date: 20240421
  Receipt Date: 20240421
  Transmission Date: 20240715
  Serious: Yes (Disabling, Other)
  Sender: FDA-Public Use
  Company Number: None

PATIENT
  Age: 43 Year
  Sex: Female
  Weight: 54 kg

DRUGS (1)
  1. BOTOX [Suspect]
     Active Substance: ONABOTULINUMTOXINA
     Indication: Skin cosmetic procedure
     Dates: start: 20240405, end: 20240405

REACTIONS (4)
  - Vision blurred [None]
  - Headache [None]
  - Eyelid ptosis [None]
  - Dark circles under eyes [None]

NARRATIVE: CASE EVENT DATE: 20240412
